FAERS Safety Report 13580832 (Version 1)
Quarter: 2017Q2

REPORT INFORMATION
  Report Type: Spontaneous
  Country: US (occurrence: US)
  Receive Date: 20170525
  Receipt Date: 20170525
  Transmission Date: 20170830
  Serious: Yes (Other)
  Sender: FDA-Public Use
  Company Number: US-IPSEN BIOPHARMACEUTICALS, INC.-2017-04186

PATIENT
  Sex: Male
  Weight: 26.7 kg

DRUGS (9)
  1. FLOVENT HFA CFC [Concomitant]
     Dosage: 220 MCG/INHALATION
     Route: 055
  2. ESOMEPRAZOLE [Concomitant]
     Active Substance: ESOMEPRAZOLE
     Dosage: BEFORE A MEAL
     Route: 048
  3. INCRELEX [Suspect]
     Active Substance: MECASERMIN
     Indication: PRODUCT USED FOR UNKNOWN INDICATION
     Dosage: NOT REPORTED
     Route: 065
     Dates: start: 201609
  4. GENOTROPIN [Concomitant]
     Active Substance: SOMATROPIN
     Indication: HORMONE REPLACEMENT THERAPY
  5. ASPIRIN. [Concomitant]
     Active Substance: ASPIRIN
     Route: 048
  6. ENALAPRIL [Concomitant]
     Active Substance: ENALAPRIL
     Route: 048
  7. INCRELEX [Suspect]
     Active Substance: MECASERMIN
     Dosage: 15 UNITS
     Route: 058
  8. BUDESONIDE. [Concomitant]
     Active Substance: BUDESONIDE
     Dosage: 0.5 MG/2 ML
     Route: 055
  9. ACETAMINOPHEN. [Concomitant]
     Active Substance: ACETAMINOPHEN
     Indication: PAIN
     Dosage: AS NEEDED
     Route: 048

REACTIONS (9)
  - Abdominal discomfort [Unknown]
  - Injection site bruising [Unknown]
  - Eosinophilic oesophagitis [Unknown]
  - Diarrhoea [Not Recovered/Not Resolved]
  - Nausea [Recovering/Resolving]
  - Tremor [Unknown]
  - Vomiting [Recovering/Resolving]
  - Abdominal pain [Recovering/Resolving]
  - Increased tendency to bruise [Unknown]
